FAERS Safety Report 6679841-6 (Version None)
Quarter: 2010Q2

REPORT INFORMATION
  Report Type: 
  Country: None (occurrence: None)
  Receive Date: 20100413
  Receipt Date: 20100408
  Transmission Date: 20101027
  Serious: Yes (Other)
  Sender: FDA-Public Use
  Company Number: FR-SANOFI-AVENTIS-2010SA009732

PATIENT
  Age: 44 Year
  Sex: Female
  Weight: 54 kg

DRUGS (5)
  1. ELOXATIN [Suspect]
     Indication: COLON CANCER
     Dosage: DOSE:5 MILLIGRAM(S)/MILLILITRE
     Route: 041
     Dates: start: 20081229, end: 20090609
  2. FLUOROURACIL [Concomitant]
     Indication: COLON CANCER
     Route: 042
     Dates: start: 20081229, end: 20090609
  3. FLUOROURACIL [Concomitant]
     Route: 040
     Dates: start: 20081229, end: 20090609
  4. ELVORINE [Concomitant]
     Indication: COLON CANCER
     Route: 042
     Dates: start: 20081229, end: 20090609
  5. GRANOCYTE [Concomitant]
     Indication: COLON CANCER
     Route: 058

REACTIONS (4)
  - GASTRIC VARICES [None]
  - PORTAL HYPERTENSION [None]
  - SPLENOMEGALY [None]
  - THROMBOCYTOPENIA [None]
